FAERS Safety Report 18776090 (Version 1)
Quarter: 2021Q1

REPORT INFORMATION
  Report Type: Spontaneous
  Country: BR (occurrence: BR)
  Receive Date: 20210122
  Receipt Date: 20210122
  Transmission Date: 20210419
  Serious: Yes (Hospitalization, Disabling, Other)
  Sender: FDA-Public Use
  Company Number: BR-B.I. PHARMACEUTICALS,INC./RIDGEFIELD-2021-BI-076561

PATIENT
  Age: 57 Year
  Sex: Male
  Weight: 80 kg

DRUGS (10)
  1. CISPLATINA [Suspect]
     Active Substance: CISPLATIN
     Indication: PRODUCT USED FOR UNKNOWN INDICATION
  2. BEROTEC [Suspect]
     Active Substance: FENOTEROL HYDROBROMIDE
     Indication: ASTHMA
     Dosage: STRENGHT: 5MG/ML; 10 DROPS AEROSOL; WHEN NEEDED
     Route: 055
  3. ENALAPRIL [Concomitant]
     Active Substance: ENALAPRIL
     Indication: HYPERTENSION
     Route: 048
     Dates: start: 2001
  4. ATENOLOL. [Concomitant]
     Active Substance: ATENOLOL
     Indication: CARDIOVASCULAR EVENT PROPHYLAXIS
     Route: 048
  5. LEVOTIROXINA [LEVOTHYROXINE] [Concomitant]
     Indication: HYPOTHYROIDISM
     Route: 048
     Dates: start: 1990
  6. MEGA MULTIVITAMIN WITH MINERALS [Concomitant]
     Indication: DRUG THERAPY
     Route: 048
     Dates: start: 2016
  7. ATROVENT [Suspect]
     Active Substance: IPRATROPIUM BROMIDE
     Indication: ASTHMA
     Dosage: 20 DROPS
     Route: 055
     Dates: start: 2001
  8. ALINIA [Concomitant]
     Active Substance: NITAZOXANIDE
     Indication: ASTHMA
     Dosage: 12/400 MG;  AEROSOL; 1 PUFF IN THE MORNING.
     Route: 055
     Dates: start: 2001
  9. INDAPAMIDA [Concomitant]
     Active Substance: INDAPAMIDE
     Indication: HYPERTENSION
     Route: 048
     Dates: start: 2001
  10. VITAMINA D3 [Concomitant]
     Active Substance: CHOLECALCIFEROL
     Indication: DRUG THERAPY
     Route: 048
     Dates: start: 2016

REACTIONS (4)
  - Colorectal cancer [Recovered/Resolved with Sequelae]
  - Arthritis [Unknown]
  - Prostate cancer [Recovered/Resolved]
  - Polyneuropathy [Not Recovered/Not Resolved]

NARRATIVE: CASE EVENT DATE: 2010
